FAERS Safety Report 7703535-9 (Version None)
Quarter: 2011Q3

REPORT INFORMATION
  Report Type: 
  Country: None (occurrence: None)
  Receive Date: 20110823
  Receipt Date: 20110817
  Transmission Date: 20111222
  Serious: Yes (Other)
  Sender: FDA-Public Use
  Company Number: GR-GENZYME-CERZ-1002215

PATIENT
  Age: 38 Year
  Sex: Female

DRUGS (1)
  1. CEREZYME [Suspect]
     Indication: GAUCHER'S DISEASE
     Dosage: UNK UNK, UNK
     Route: 042

REACTIONS (1)
  - HODGKIN'S DISEASE NODULAR SCLEROSIS STAGE III [None]
